FAERS Safety Report 4696254-7 (Version None)
Quarter: 2005Q2

REPORT INFORMATION
  Report Type: 
  Country: None (occurrence: None)
  Receive Date: 20050621
  Receipt Date: 20050609
  Transmission Date: 20051028
  Serious: Yes (Hospitalization)
  Sender: FDA-Public Use
  Company Number: 004961

PATIENT
  Age: 49 Year
  Sex: Male
  Weight: 91.8 kg

DRUGS (5)
  1. WARFARIN SODIUM [Suspect]
     Indication: ATRIAL FIBRILLATION
     Dosage: 7.50 MG, QD, ORAL
     Route: 048
     Dates: start: 20020701
  2. WARFARIN SODIUM [Suspect]
     Indication: ATRIAL FIBRILLATION
     Dosage: 7.50 MG, QD, ORAL
     Route: 048
     Dates: start: 20050401
  3. LISINOPRIL [Concomitant]
  4. LOPRESSOR [Concomitant]
  5. LIPITOR [Concomitant]

REACTIONS (2)
  - ATRIAL FIBRILLATION [None]
  - COUGH [None]
